FAERS Safety Report 17051976 (Version 1)
Quarter: 2019Q4

REPORT INFORMATION
  Report Type: Spontaneous
  Country: IT (occurrence: IT)
  Receive Date: 20191120
  Receipt Date: 20191120
  Transmission Date: 20200122
  Serious: Yes (Other)
  Sender: FDA-Public Use
  Company Number: IT-SA-2019SA317241

PATIENT
  Sex: Male

DRUGS (6)
  1. AMIKACIN SULFATE. [Suspect]
     Active Substance: AMIKACIN SULFATE
     Indication: TUBERCULOSIS
     Dosage: 750 MG, QD
     Route: 042
     Dates: start: 20190923
  2. PYRAZINAMIDE. [Suspect]
     Active Substance: PYRAZINAMIDE
     Indication: TUBERCULOSIS
     Dosage: 4 DF, QD
     Route: 048
     Dates: start: 20190916
  3. ISONIAZID. [Suspect]
     Active Substance: ISONIAZID
     Indication: TUBERCULOSIS
     Dosage: 2 DF, QD
     Route: 048
     Dates: start: 20190916
  4. RIFADIN [Suspect]
     Active Substance: RIFAMPIN
     Indication: TUBERCULOSIS
     Dosage: 2 DF, QD
     Route: 048
     Dates: start: 20190916
  5. ETHAMBUTOL HYDROCHLORIDE. [Suspect]
     Active Substance: ETHAMBUTOL HYDROCHLORIDE
     Indication: TUBERCULOSIS
     Dosage: 1200 MG, QD
     Route: 048
     Dates: start: 20190916
  6. FLUIMUCIL [Concomitant]
     Active Substance: ACETYLCYSTEINE

REACTIONS (2)
  - Hyperuricaemia [Recovering/Resolving]
  - Hypertransaminasaemia [Recovering/Resolving]

NARRATIVE: CASE EVENT DATE: 20190927
